FAERS Safety Report 16607854 (Version 1)
Quarter: 2019Q3

REPORT INFORMATION
  Report Type: Spontaneous
  Country: US (occurrence: US)
  Receive Date: 20190719
  Receipt Date: 20190719
  Transmission Date: 20191004
  Serious: Yes (Other)
  Sender: FDA-Public Use
  Company Number: None

PATIENT
  Age: 58 Year
  Sex: Female

DRUGS (6)
  1. 24-HOUR ALLERGY NASAL SPRAY [Concomitant]
  2. ALENDRONATE 70 MG TABLETS [Suspect]
     Active Substance: ALENDRONATE SODIUM
     Indication: OSTEOPOROSIS
     Dosage: ?          OTHER FREQUENCY:ONCE A WEEK;?
     Route: 048
     Dates: start: 20190616, end: 20190707
  3. PRO AIR-HFA INHALER [Concomitant]
  4. CALCIUM [Concomitant]
     Active Substance: CALCIUM
  5. VITAMIN D3 [Concomitant]
     Active Substance: CHOLECALCIFEROL
  6. MAGNESIUM [Concomitant]
     Active Substance: MAGNESIUM

REACTIONS (6)
  - Insomnia [None]
  - Pain in jaw [None]
  - Nausea [None]
  - Impaired quality of life [None]
  - Back pain [None]
  - Headache [None]

NARRATIVE: CASE EVENT DATE: 20190707
